FAERS Safety Report 9678079 (Version 1)
Quarter: 2013Q4

REPORT INFORMATION
  Report Type: Spontaneous
  Country: JP (occurrence: JP)
  Receive Date: 20131108
  Receipt Date: 20131108
  Transmission Date: 20140711
  Serious: Yes (Other)
  Sender: FDA-Public Use
  Company Number: JP-ASTRAZENECA-2013SE80561

PATIENT
  Age: 78 Year
  Sex: Male
  Weight: 58 kg

DRUGS (5)
  1. MARCAINE [Suspect]
     Indication: SPINAL ANAESTHESIA
     Route: 037
  2. POPSCAINE [Suspect]
     Indication: NERVE BLOCK
     Route: 053
  3. POPSCAINE [Suspect]
     Indication: NERVE BLOCK
     Route: 053
  4. POPSCAINE [Suspect]
     Indication: NERVE BLOCK
     Route: 053
  5. POPSCAINE [Suspect]
     Indication: NERVE BLOCK
     Route: 053

REACTIONS (4)
  - Toxicity to various agents [Recovered/Resolved]
  - Depressed level of consciousness [Recovered/Resolved]
  - Yawning [Unknown]
  - Bradycardia [Unknown]
